FAERS Safety Report 8329271-6 (Version None)
Quarter: 2012Q2

REPORT INFORMATION
  Report Type: 
  Country: None (occurrence: None)
  Receive Date: 20120502
  Receipt Date: 20110511
  Transmission Date: 20120825
  Serious: No
  Sender: FDA-Public Use
  Company Number: US-ASTRAZENECA-2011SE28066

PATIENT
  Sex: Female

DRUGS (4)
  1. MULTIPLE VITAMINS [Concomitant]
  2. FASLODEX [Suspect]
     Indication: BREAST CANCER
     Route: 030
  3. LISINOPRIL AND HYDROCHLOROTHIAZIDE [Suspect]
     Route: 048
  4. HERBS [Concomitant]

REACTIONS (4)
  - CHEST PAIN [None]
  - COUGH [None]
  - LETHARGY [None]
  - NAUSEA [None]
